FAERS Safety Report 24237109 (Version 2)
Quarter: 2024Q4

REPORT INFORMATION
  Report Type: Spontaneous
  Country: US (occurrence: US)
  Receive Date: 20240822
  Receipt Date: 20241029
  Transmission Date: 20250115
  Serious: Yes (Other)
  Sender: REGENERON
  Company Number: US-REGENERON PHARMACEUTICALS, INC.-2024-113825

PATIENT
  Sex: Female

DRUGS (3)
  1. EYLEA [Suspect]
     Active Substance: AFLIBERCEPT
     Indication: Neovascular age-related macular degeneration
     Dosage: 2MG; FREQUENCY: ABOUT EVERY 8 WEEKS Q8W, INTO LEFT EYE, FORMULATION: VIAL
     Dates: start: 20210504, end: 20210504
  2. EYLEA [Suspect]
     Active Substance: AFLIBERCEPT
     Dosage: 2MG; FREQUENCY: ABOUT EVERY 8 WEEKS Q8W, INTO LEFT EYE, FORMULATION: VIAL
     Dates: end: 2024
  3. EYLEA [Suspect]
     Active Substance: AFLIBERCEPT
     Dosage: 2MG; FREQUENCY: ABOUT EVERY 8 WEEKS Q8W, INTO LEFT EYE, FORMULATION: VIAL
     Dates: start: 2024

REACTIONS (3)
  - Pneumonia [Recovered/Resolved]
  - Injury [Unknown]
  - Product dose omission issue [Recovered/Resolved]

NARRATIVE: CASE EVENT DATE: 20240101
